FAERS Safety Report 9797128 (Version 1)
Quarter: 2014Q1

REPORT INFORMATION
  Report Type: Report from Study
  Country: US (occurrence: US)
  Receive Date: 20140106
  Receipt Date: 20140106
  Transmission Date: 20141002
  Serious: Yes (Other)
  Sender: FDA-Public Use
  Company Number: PHEH2013US026570

PATIENT
  Sex: Female

DRUGS (1)
  1. GILENYA [Suspect]
     Indication: MULTIPLE SCLEROSIS
     Dosage: 0.5 MG, QD
     Route: 048
     Dates: start: 201107

REACTIONS (8)
  - Carpal tunnel syndrome [Unknown]
  - Tinel^s sign [Unknown]
  - Hypoaesthesia [Unknown]
  - Paraesthesia [Unknown]
  - Grip strength decreased [Unknown]
  - Muscular weakness [Unknown]
  - Clumsiness [Unknown]
  - Fatigue [Unknown]
